FAERS Safety Report 17772599 (Version 1)
Quarter: 2020Q2

REPORT INFORMATION
  Report Type: Spontaneous
  Country: US (occurrence: US)
  Receive Date: 20200512
  Receipt Date: 20200512
  Transmission Date: 20200714
  Serious: Yes (Other)
  Sender: FDA-Public Use
  Company Number: US-FRESENIUS MEDICAL CARE RENAL THERAPIES GROUP-FMC-2005-000478

PATIENT
  Age: 67 Year
  Sex: Male
  Weight: 73 kg

DRUGS (5)
  1. DELFLEX WITH DEXTROSE 2.5% LOW MAGNESIUM LOW CALCIUM [Suspect]
     Active Substance: CALCIUM CHLORIDE\DEXTROSE\MAGNESIUM CHLORIDE\SODIUM CHLORIDE\SODIUM LACTATE
     Indication: END STAGE RENAL DISEASE
     Dosage: 5 EXCHANGES, FILL VOLUME 2500 ML, DWELL TIME 1 HOUR 20 MINUTE, NO LAST FILL, NO DAYTIME EXCHANGE, SI
     Route: 033
     Dates: start: 20170716
  2. VANCOMYCIN [Concomitant]
     Active Substance: VANCOMYCIN
  3. CEFTAZIDIME. [Concomitant]
     Active Substance: CEFTAZIDIME
  4. DELFLEX WITH DEXTROSE 1.5% LOW MAGNESIUM LOW CALCIUM [Suspect]
     Active Substance: CALCIUM CHLORIDE\DEXTROSE\MAGNESIUM CHLORIDE\SODIUM CHLORIDE\SODIUM LACTATE
     Indication: END STAGE RENAL DISEASE
     Dosage: 5 EXCHANGES, FILL VOLUME 2500 ML, DWELL TIME 1 HOUR 20 MINUTE, NO LAST FILL, NO DAYTIME EXCHANGE, SI
     Route: 033
     Dates: start: 20170716
  5. DELFLEX WITH DEXTROSE 4.25% LOW MAGNESIUM LOW CALCIUM [Suspect]
     Active Substance: CALCIUM CHLORIDE\DEXTROSE\MAGNESIUM CHLORIDE\SODIUM CHLORIDE\SODIUM LACTATE
     Indication: END STAGE RENAL DISEASE
     Dosage: 5 EXCHANGES, FILL VOLUME 2500 ML, DWELL TIME 1 HOUR 20 MINUTE, NO LAST FILL, NO DAYTIME EXCHANGE, SI
     Route: 033
     Dates: start: 20170716

REACTIONS (1)
  - Peritonitis [Unknown]
